FAERS Safety Report 21550653 (Version 2)
Quarter: 2022Q4

REPORT INFORMATION
  Report Type: Spontaneous
  Country: DE (occurrence: DE)
  Receive Date: 20221103
  Receipt Date: 20221118
  Transmission Date: 20230112
  Serious: Yes (Hospitalization)
  Sender: FDA-Public Use
  Company Number: DE-TEVA-2022-DE-2822838

PATIENT
  Age: 16 Year
  Sex: Female

DRUGS (6)
  1. DIPYRONE [Suspect]
     Active Substance: DIPYRONE
     Indication: Procedural pain
     Dosage: 125 MG/H (RELATIVE DAILY DOSE WAS 60.0 MG/KG)
     Route: 041
  2. METRONIDAZOLE [Suspect]
     Active Substance: METRONIDAZOLE
     Indication: Peritonitis
     Route: 065
  3. VANCOMYCIN [Suspect]
     Active Substance: VANCOMYCIN
     Indication: Peritonitis
     Route: 065
  4. MEROPENEM [Suspect]
     Active Substance: MEROPENEM
     Indication: Peritonitis
     Route: 065
  5. CEFOTAXIME [Concomitant]
     Active Substance: CEFOTAXIME SODIUM
     Indication: Peritonitis
     Route: 065
  6. CLINDAMYCIN [Concomitant]
     Active Substance: CLINDAMYCIN
     Indication: Peritonitis
     Route: 065

REACTIONS (1)
  - Agranulocytosis [Recovered/Resolved]
